FAERS Safety Report 6193234-X (Version None)
Quarter: 2009Q2

REPORT INFORMATION
  Report Type: 
  Country: None (occurrence: None)
  Receive Date: 20090518
  Receipt Date: 20090508
  Transmission Date: 20091009
  Serious: Yes (Hospitalization)
  Sender: FDA-Public Use
  Company Number: A0784433A

PATIENT
  Age: 45 Year
  Sex: Male
  Weight: 95.9 kg

DRUGS (6)
  1. AVANDIA [Suspect]
     Dosage: 8MG TWICE PER DAY
     Route: 048
     Dates: start: 20010101, end: 20061101
  2. AVANDAMET [Suspect]
     Route: 048
     Dates: start: 20070101, end: 20070801
  3. GLUCOPHAGE [Concomitant]
  4. BYETTA [Concomitant]
  5. VIAGRA [Concomitant]
  6. CIALIS [Concomitant]

REACTIONS (4)
  - CORONARY ARTERY DISEASE [None]
  - HYPERLIPIDAEMIA [None]
  - MYOCARDIAL INFARCTION [None]
  - TRANSIENT ISCHAEMIC ATTACK [None]
